FAERS Safety Report 8436808-5 (Version None)
Quarter: 2012Q2

REPORT INFORMATION
  Report Type: 
  Country: None (occurrence: None)
  Receive Date: 20120614
  Receipt Date: 20120607
  Transmission Date: 20120825
  Serious: Yes (Hospitalization, Other)
  Sender: FDA-Public Use
  Company Number: MX-ABBOTT-12P-107-0945460-00

PATIENT
  Sex: Female
  Weight: 67.5 kg

DRUGS (9)
  1. KALETRA [Suspect]
     Indication: HIV INFECTION
     Dosage: 400/100MG TWICE A DAY
     Route: 048
     Dates: start: 20120528
  2. TENOFOVIR DISOPROXIL FUMARATE [Concomitant]
     Indication: HIV INFECTION
     Route: 048
     Dates: start: 20120328, end: 20120523
  3. TENOFOVIR DISOPROXIL FUMARATE [Concomitant]
     Route: 048
     Dates: start: 20120607
  4. LEUCOVORIN CALCIUM [Concomitant]
     Indication: PREGNANCY
     Route: 048
     Dates: start: 20120528, end: 20120605
  5. RALTEGRAVIR [Concomitant]
     Indication: HIV INFECTION
     Route: 048
     Dates: start: 20120328, end: 20120523
  6. BMS-663068 [Concomitant]
     Indication: HIV INFECTION
     Route: 048
     Dates: start: 20120328, end: 20120523
  7. LOVAZA [Concomitant]
     Indication: HYPERTRIGLYCERIDAEMIA
     Dates: start: 20120229, end: 20120528
  8. BEZAFIBRATE [Concomitant]
     Indication: HYPERTRIGLYCERIDAEMIA
     Route: 048
     Dates: start: 20120411, end: 20120528
  9. LAMIVUDINE + ZIDOVUDINE [Concomitant]
     Indication: HIV INFECTION
     Dosage: 300/150MG TWICE A DAY
     Route: 048
     Dates: start: 20120528

REACTIONS (1)
  - ABORTION [None]
